FAERS Safety Report 23949368 (Version 1)
Quarter: 2024Q2

REPORT INFORMATION
  Report Type: Spontaneous
  Country: US (occurrence: US)
  Receive Date: 20240607
  Receipt Date: 20240607
  Transmission Date: 20240716
  Serious: Yes (Other)
  Sender: FDA-Public Use
  Company Number: US-AMGEN-USASP2024108374

PATIENT
  Age: 49 Year
  Sex: Male

DRUGS (5)
  1. ETELCALCETIDE [Suspect]
     Active Substance: ETELCALCETIDE
     Indication: Hyperparathyroidism secondary
     Dosage: UNK
     Route: 065
  2. ACETAZOLAMIDE [Concomitant]
     Active Substance: ACETAZOLAMIDE
     Dosage: 250 MILLIGRAM
     Route: 065
  3. ACETAZOLAMIDE [Concomitant]
     Active Substance: ACETAZOLAMIDE
     Dosage: 500 MILLIGRAM
     Route: 065
  4. CALCITRIOL [Concomitant]
     Active Substance: CALCITRIOL
     Indication: Hyperparathyroidism secondary
     Dosage: UNK
     Route: 042
  5. PHOSPHORUS [Concomitant]
     Active Substance: PHOSPHORUS
     Indication: Hyperparathyroidism secondary
     Dosage: UNK

REACTIONS (9)
  - Orbital compartment syndrome [Recovering/Resolving]
  - Blood parathyroid hormone increased [Unknown]
  - Blood phosphorus increased [Unknown]
  - Calcinosis [Unknown]
  - Joint contracture [Unknown]
  - Skin tightness [Unknown]
  - Treatment noncompliance [Unknown]
  - Anaemia [Unknown]
  - Somnolence [Unknown]
